FAERS Safety Report 7032483-5 (Version None)
Quarter: 2010Q4

REPORT INFORMATION
  Report Type: 
  Country: None (occurrence: None)
  Receive Date: 20101007
  Receipt Date: 20100907
  Transmission Date: 20110411
  Serious: Yes (Other)
  Sender: FDA-Public Use
  Company Number: DE-BRISTOL-MYERS SQUIBB COMPANY-15276348

PATIENT
  Age: 79 Year
  Sex: Male
  Weight: 122 kg

DRUGS (10)
  1. CETUXIMAB [Suspect]
     Indication: COLORECTAL CANCER
     Dosage: TEMPORARILY INTERRUPTED RECENT INF:16AUG2010
     Route: 042
     Dates: start: 20100712
  2. IRINOTECAN HCL [Suspect]
     Indication: COLORECTAL CANCER
     Dosage: TEMPORARILY INTERRUPTED RECENT INF:16AUG2010 IV INF
     Route: 042
     Dates: start: 20100712
  3. FLUOROURACIL [Suspect]
     Indication: COLORECTAL CANCER
     Dosage: TEMPORARILY INTERRUPTED RECENT INF:16AUG2010
     Route: 042
     Dates: start: 20100712
  4. FOLINIC ACID [Suspect]
     Indication: COLORECTAL CANCER
     Dosage: TEMPORARILY INTERRUPTED RECENT INF:16AUG2010
     Route: 042
     Dates: start: 20100712
  5. ACETYLSALICYLIC ACID SRT [Concomitant]
  6. SIMVASTATIN [Concomitant]
  7. METOPROLOL SUCCINATE [Concomitant]
  8. TORASEMIDE [Concomitant]
  9. PANTOPRAZOLE [Concomitant]
  10. OLMESARTAN MEDOXOMIL [Concomitant]

REACTIONS (1)
  - RASH [None]
